FAERS Safety Report 6830845-X (Version None)
Quarter: 2010Q2

REPORT INFORMATION
  Report Type: 
  Country: None (occurrence: None)
  Receive Date: 20100520
  Receipt Date: 20090408
  Transmission Date: 20101027
  Serious: Yes (Other)
  Sender: FDA-Public Use
  Company Number: 2009196464

PATIENT
  Age: 55 Year
  Sex: Female
  Weight: 68 kg

DRUGS (12)
  1. PROVERA [Suspect]
     Indication: HORMONE REPLACEMENT THERAPY
     Dosage: 2.5 MG, ORAL
     Route: 048
     Dates: start: 19930101, end: 19970101
  2. MEDROXYPROGESTERONE ACETATE [Suspect]
     Indication: HORMONE REPLACEMENT THERAPY
     Dosage: 2.5 MG, ORAL
     Route: 048
     Dates: start: 19970101, end: 20000101
  3. ESTRACE [Suspect]
     Indication: HORMONE REPLACEMENT THERAPY
     Dosage: 1 MG
     Dates: start: 19930101, end: 20000101
  4. ORTHO-PREFEST (ESTRADIOL, NORGESTIMATE) [Suspect]
     Indication: HORMONE REPLACEMENT THERAPY
     Dates: start: 20000301, end: 20010401
  5. ESTRADIOL [Suspect]
     Indication: HORMONE REPLACEMENT THERAPY
     Dosage: 1 MG
     Dates: start: 19981101, end: 19990201
  6. PREMARIN [Suspect]
     Indication: HORMONE REPLACEMENT THERAPY
  7. PREMPRO [Suspect]
     Indication: HORMONE REPLACEMENT THERAPY
  8. ESTROGEN NOS (ESTROGENS NOS) [Suspect]
     Indication: HORMONE REPLACEMENT THERAPY
  9. PAXIL [Concomitant]
  10. SYNTROID (LEVOTHYROXINE SODIUM) [Concomitant]
  11. LIPITOR [Concomitant]
  12. ZITHROMAX [Concomitant]

REACTIONS (1)
  - OVARIAN CANCER [None]
